FAERS Safety Report 7081917-9 (Version None)
Quarter: 2010Q4

REPORT INFORMATION
  Report Type: 
  Country: None (occurrence: None)
  Receive Date: 20101103
  Receipt Date: 20101027
  Transmission Date: 20110411
  Serious: Yes (Other)
  Sender: FDA-Public Use
  Company Number: US-PFIZER INC-2010124734

PATIENT
  Sex: Female
  Weight: 65.77 kg

DRUGS (4)
  1. LIPITOR [Suspect]
     Dosage: UNK
     Dates: start: 20060101, end: 20100917
  2. XANAX [Concomitant]
  3. PROZAC [Concomitant]
  4. RANITIDINE [Concomitant]

REACTIONS (1)
  - EOSINOPHILIC CELLULITIS [None]
